FAERS Safety Report 4311383-5 (Version None)
Quarter: 2004Q1

REPORT INFORMATION
  Report Type: 
  Country: None (occurrence: None)
  Receive Date: 20040302
  Receipt Date: 20040219
  Transmission Date: 20041129
  Serious: Yes (Death)
  Sender: FDA-Public Use
  Company Number: 163-20785-03060318

PATIENT
  Age: 73 Year
  Sex: Male

DRUGS (1)
  1. THALOMID [Suspect]
     Indication: METASTASES TO BONE
     Dosage: 50 MG, QD, ORAL
     Route: 048
     Dates: start: 20021111, end: 20021201

REACTIONS (1)
  - MYELOID METAPLASIA [None]
